FAERS Safety Report 22912848 (Version 6)
Quarter: 2023Q4

REPORT INFORMATION
  Report Type: Report from Study
  Country: CA (occurrence: CA)
  Receive Date: 20230906
  Receipt Date: 20231018
  Transmission Date: 20240109
  Serious: Yes (Other)
  Sender: FDA-Public Use
  Company Number: CA-TAKEDA-2023TUS080291

PATIENT
  Age: 59 Year
  Sex: Female

DRUGS (10)
  1. VEDOLIZUMAB [Suspect]
     Active Substance: VEDOLIZUMAB
     Indication: Colitis ulcerative
     Dosage: 300 MILLIGRAM
     Route: 042
     Dates: start: 20230801
  2. VEDOLIZUMAB [Suspect]
     Active Substance: VEDOLIZUMAB
     Dosage: 300 MILLIGRAM
     Route: 042
  3. VEDOLIZUMAB [Suspect]
     Active Substance: VEDOLIZUMAB
     Dosage: 300 MILLIGRAM, Q4WEEKS
     Route: 042
     Dates: start: 20231011
  4. PREDNISONE [Suspect]
     Active Substance: PREDNISONE
     Indication: Product used for unknown indication
     Dosage: 40 MILLIGRAM
     Route: 065
     Dates: start: 20230503
  5. IRON [Concomitant]
     Active Substance: IRON
     Dosage: UNK UNK, QD
  6. MESALAMINE [Concomitant]
     Active Substance: MESALAMINE
     Dosage: UNK
     Dates: start: 20230503
  7. CALCIUM [Concomitant]
     Active Substance: CALCIUM
     Dosage: 1000 MILLIGRAM
  8. DEXILANT [Concomitant]
     Active Substance: DEXLANSOPRAZOLE
     Dosage: 60 MILLIGRAM
     Dates: start: 202003
  9. MCAL [Concomitant]
     Dosage: UNK
  10. Salofalk [Concomitant]
     Dosage: UNK UNK, QD
     Dates: start: 20230928

REACTIONS (28)
  - Haematochezia [Unknown]
  - Dry eye [Unknown]
  - Eye pruritus [Unknown]
  - Ocular hyperaemia [Not Recovered/Not Resolved]
  - Colitis ulcerative [Recovering/Resolving]
  - Rash macular [Unknown]
  - Tremor [Not Recovered/Not Resolved]
  - Hypersomnia [Not Recovered/Not Resolved]
  - Intraocular pressure increased [Unknown]
  - Frequent bowel movements [Unknown]
  - Mucous stools [Unknown]
  - Weight increased [Unknown]
  - Malaise [Unknown]
  - Rectal tenesmus [Unknown]
  - Visual impairment [Unknown]
  - Feeling abnormal [Unknown]
  - Contusion [Unknown]
  - Hypoaesthesia [Unknown]
  - Off label use [Unknown]
  - Dyspnoea [Unknown]
  - Heart rate increased [Unknown]
  - Vision blurred [Unknown]
  - Flatulence [Unknown]
  - Muscle spasms [Unknown]
  - Headache [Unknown]
  - Back pain [Unknown]
  - Fatigue [Recovering/Resolving]
  - Nausea [Unknown]

NARRATIVE: CASE EVENT DATE: 20230928
